FAERS Safety Report 10167500 (Version 5)
Quarter: 2014Q2

REPORT INFORMATION
  Report Type: Report from Study
  Country: JP (occurrence: JP)
  Receive Date: 20140512
  Receipt Date: 20140619
  Transmission Date: 20141212
  Serious: Yes (Life-Threatening, Hospitalization, Other)
  Sender: FDA-Public Use
  Company Number: JP-ABBVIE-14P-087-1231159-00

PATIENT
  Age: 44 Year
  Sex: Male
  Weight: 52.2 kg

DRUGS (9)
  1. HUMIRA [Suspect]
     Indication: CROHN^S DISEASE
     Dates: start: 20130327, end: 20130327
  2. HUMIRA [Suspect]
     Dates: start: 20130410
  3. HUMIRA [Suspect]
     Dates: start: 20130509, end: 20130730
  4. ENTERAL NUTRITION [Concomitant]
     Indication: NUTRITIONAL SUPPLEMENTATION
     Route: 051
  5. CEFTRIAXONE SODIUM HYDRATE [Concomitant]
     Indication: INFECTION
     Route: 041
     Dates: start: 20130322, end: 20130326
  6. CEFTRIAXONE SODIUM HYDRATE [Concomitant]
     Dates: start: 20130403, end: 20130408
  7. CEFTRIAXONE SODIUM HYDRATE [Concomitant]
     Dates: start: 20130423, end: 20130426
  8. FAMOTIDINE [Concomitant]
     Indication: ABDOMINAL PAIN
     Route: 041
     Dates: start: 20130403, end: 20130408
  9. FAMOTIDINE [Concomitant]
     Dates: start: 20130423, end: 20130426

REACTIONS (1)
  - Angiocentric lymphoma [Recovering/Resolving]
